FAERS Safety Report 10735736 (Version 1)
Quarter: 2015Q1

REPORT INFORMATION
  Report Type: Spontaneous
  Country: US (occurrence: None)
  Receive Date: 20150120
  Receipt Date: 20150120
  Transmission Date: 20150721
  Serious: Yes (Other)
  Sender: FDA-Public Use
  Company Number: 2014ILOUS001279

PATIENT
  Age: 43 Year
  Sex: Female

DRUGS (5)
  1. FANAPT [Suspect]
     Active Substance: ILOPERIDONE
     Indication: SCHIZOPHRENIA
  2. SEROQUEL [Suspect]
     Active Substance: QUETIAPINE FUMARATE
     Indication: PRODUCT USED FOR UNKNOWN INDICATION
  3. FANAPT [Suspect]
     Active Substance: ILOPERIDONE
     Indication: PRODUCT USED FOR UNKNOWN INDICATION
  4. DEPAKOTE [Suspect]
     Active Substance: DIVALPROEX SODIUM
     Indication: PRODUCT USED FOR UNKNOWN INDICATION
  5. LATUDA [Suspect]
     Active Substance: LURASIDONE HYDROCHLORIDE
     Indication: PRODUCT USED FOR UNKNOWN INDICATION

REACTIONS (16)
  - Fall [None]
  - Deafness [None]
  - Nausea [None]
  - Trismus [None]
  - Thirst [None]
  - Contusion [None]
  - Blindness [None]
  - Palpitations [None]
  - Pharyngeal oedema [None]
  - Weight increased [None]
  - Pruritus [None]
  - Head injury [None]
  - Face injury [None]
  - Thrombosis [None]
  - Cerebrovascular accident [None]
  - Weight decreased [None]
